FAERS Safety Report 25933230 (Version 1)
Quarter: 2025Q4

REPORT INFORMATION
  Report Type: Spontaneous
  Country: US (occurrence: US)
  Receive Date: 20251017
  Receipt Date: 20251017
  Transmission Date: 20260118
  Serious: No
  Sender: Kenvue
  Company Number: US-KENVUE-20250914434

PATIENT
  Age: 44 Year
  Sex: Female

DRUGS (3)
  1. ZYRTEC [Suspect]
     Active Substance: CETIRIZINE HYDROCHLORIDE
     Indication: Pruritus
     Dosage: 1 DOSAGE FORM, ONCE A DAY, (ONCE AT NIGHT AROUND 8 PM)
     Route: 065
     Dates: start: 20250924, end: 202509
  2. ZYRTEC [Suspect]
     Active Substance: CETIRIZINE HYDROCHLORIDE
     Indication: Hypersensitivity
  3. ADVIL [Suspect]
     Active Substance: IBUPROFEN
     Indication: Product used for unknown indication
     Dosage: 1 DOSAGE FORM (MUCH EARLIER IN THE DAY)
     Route: 065

REACTIONS (1)
  - Euphoric mood [Recovering/Resolving]

NARRATIVE: CASE EVENT DATE: 20250924
